FAERS Safety Report 9046467 (Version 1)
Quarter: 2013Q1

REPORT INFORMATION
  Report Type: Spontaneous
  Country: US (occurrence: None)
  Receive Date: 20130128
  Receipt Date: 20130128
  Transmission Date: 20140127
  Serious: Yes (Other)
  Sender: FDA-Public Use
  Company Number: None

PATIENT
  Sex: 0

DRUGS (1)
  1. FLAGYL [Suspect]
     Indication: GASTROENTERITIS VIRAL
     Route: 048
     Dates: start: 20130114, end: 20130121

REACTIONS (7)
  - Arrhythmia [None]
  - Chest pain [None]
  - Anxiety [None]
  - Nausea [None]
  - Diarrhoea [None]
  - Paraesthesia [None]
  - Depressed level of consciousness [None]
